FAERS Safety Report 5415342-0 (Version None)
Quarter: 2007Q3

REPORT INFORMATION
  Report Type: 
  Country: None (occurrence: None)
  Receive Date: 20070813
  Receipt Date: 20070710
  Transmission Date: 20080115
  Serious: Yes (Death)
  Sender: FDA-Public Use
  Company Number: 2007RR-08649

PATIENT
  Sex: Female

DRUGS (2)
  1. SERTRALINE [Suspect]
  2. DESMETHYLSERTRALINE (DESMETHYLSERTRALINE) [Suspect]

REACTIONS (1)
  - DRUG TOXICITY [None]
